FAERS Safety Report 8838238 (Version 1)
Quarter: 2012Q4

REPORT INFORMATION
  Report Type: 
  Country: US (occurrence: US)
  Receive Date: 20121012
  Receipt Date: 20121012
  Transmission Date: 20130627
  Serious: Yes (Other)
  Sender: FDA-Public Use
  Company Number: US-ROCHE-1139833

PATIENT
  Age: 16 Year
  Sex: Female
  Weight: 49.8 kg

DRUGS (2)
  1. PROTROPIN [Suspect]
     Indication: TURNER^S SYNDROME
     Dosage: in 0.5ml volume
     Route: 058
     Dates: start: 19931006
  2. SYNTHROID [Concomitant]
     Route: 065

REACTIONS (1)
  - Hypothyroidism [Unknown]
